FAERS Safety Report 10406694 (Version 1)
Quarter: 2014Q3

REPORT INFORMATION
  Report Type: Report from Study
  Country: CA (occurrence: CA)
  Receive Date: 20140825
  Receipt Date: 20140825
  Transmission Date: 20150326
  Serious: No
  Sender: FDA-Public Use
  Company Number: CA-JNJFOC-20140818164

PATIENT
  Age: 42 Year
  Sex: Male
  Weight: 113.5 kg

DRUGS (1)
  1. REMICADE [Suspect]
     Active Substance: INFLIXIMAB
     Indication: COLITIS ULCERATIVE
     Route: 042
     Dates: start: 20050419

REACTIONS (3)
  - Prostatomegaly [Recovering/Resolving]
  - Prostatic specific antigen increased [Recovering/Resolving]
  - Prostate infection [Recovering/Resolving]

NARRATIVE: CASE EVENT DATE: 201407
